FAERS Safety Report 6949489-4 (Version None)
Quarter: 2010Q3

REPORT INFORMATION
  Report Type: 
  Country: None (occurrence: None)
  Receive Date: 20100828
  Receipt Date: 20091228
  Transmission Date: 20110219
  Serious: No
  Sender: FDA-Public Use
  Company Number: US-ABBOTT-10P-163-0617267-00

PATIENT
  Sex: Female
  Weight: 118.04 kg

DRUGS (29)
  1. NIASPAN [Suspect]
     Indication: BLOOD CHOLESTEROL INCREASED
     Dates: start: 20090601
  2. NIASPAN [Suspect]
     Indication: BLOOD TRIGLYCERIDES INCREASED
  3. NIASPAN [Suspect]
  4. LOVXYL [Concomitant]
     Indication: HYPOTHYROIDISM
  5. DIOVAN [Concomitant]
     Indication: HYPERTENSION
     Dosage: 320 MG
  6. FUROSEMIDE [Concomitant]
     Indication: HYPERTENSION
     Route: 048
  7. AMPERE [Concomitant]
     Indication: BLOOD TRIGLYCERIDES
  8. ASPIRIN [Concomitant]
     Indication: PRODUCT USED FOR UNKNOWN INDICATION
  9. POTASSIUM [Concomitant]
     Indication: PRODUCT USED FOR UNKNOWN INDICATION
  10. ROPINIROL [Concomitant]
     Indication: RESTLESS LEGS SYNDROME
  11. ADVIR INHALER [Concomitant]
     Indication: PRODUCT USED FOR UNKNOWN INDICATION
     Dosage: 1IN1 DAY AND AS REQUIRED
  12. ALBUTEROL SULATE [Concomitant]
     Indication: PRODUCT USED FOR UNKNOWN INDICATION
  13. METROGEL [Concomitant]
     Indication: ROSACEA
  14. DEPAKOTE ER [Concomitant]
     Indication: PRODUCT USED FOR UNKNOWN INDICATION
     Dosage: 3/500 AND 1/250 AT BED TIME
  15. ZONISAMIDE [Concomitant]
     Indication: DEPRESSION
  16. COGENTIN [Concomitant]
     Indication: PRODUCT USED FOR UNKNOWN INDICATION
     Route: 048
  17. CONAZEPAM [Concomitant]
     Indication: PRODUCT USED FOR UNKNOWN INDICATION
  18. PONZAPEN [Concomitant]
     Indication: PRODUCT USED FOR UNKNOWN INDICATION
     Dosage: AT NIGHT
  19. AMBIEN [Concomitant]
     Indication: PRODUCT USED FOR UNKNOWN INDICATION
     Dosage: 10-15 MG PRN
  20. MELOXICAM [Concomitant]
     Indication: BACK DISORDER
  21. NORCO [Concomitant]
     Indication: PRODUCT USED FOR UNKNOWN INDICATION
  22. LODAMAX [Concomitant]
     Indication: IRITIS
  23. CALCIUM [Concomitant]
     Indication: PRODUCT USED FOR UNKNOWN INDICATION
  24. VIT D 3 [Concomitant]
     Indication: PRODUCT USED FOR UNKNOWN INDICATION
  25. MAGNESIUM [Concomitant]
     Indication: PRODUCT USED FOR UNKNOWN INDICATION
  26. SALMON OIL [Concomitant]
     Indication: PRODUCT USED FOR UNKNOWN INDICATION
  27. BENADRYL [Concomitant]
     Indication: PRODUCT USED FOR UNKNOWN INDICATION
  28. SENACOT [Concomitant]
     Indication: PRODUCT USED FOR UNKNOWN INDICATION
  29. INDERAL [Concomitant]
     Indication: TREMOR

REACTIONS (4)
  - DYSGEUSIA [None]
  - PARAESTHESIA [None]
  - PRURITUS [None]
  - TREMOR [None]
